FAERS Safety Report 25607957 (Version 1)
Quarter: 2025Q3

REPORT INFORMATION
  Report Type: Spontaneous
  Country: US (occurrence: US)
  Receive Date: 20250725
  Receipt Date: 20250725
  Transmission Date: 20251021
  Serious: No
  Sender: MYLAN
  Company Number: US-MYLANLABS-2025M1060189

PATIENT
  Sex: Male

DRUGS (4)
  1. LATANOPROST [Suspect]
     Active Substance: LATANOPROST
     Indication: Product used for unknown indication
  2. LATANOPROST [Suspect]
     Active Substance: LATANOPROST
     Route: 065
  3. LATANOPROST [Suspect]
     Active Substance: LATANOPROST
     Route: 065
  4. LATANOPROST [Suspect]
     Active Substance: LATANOPROST

REACTIONS (2)
  - Circumstance or information capable of leading to medication error [Unknown]
  - Product quality issue [Unknown]
